FAERS Safety Report 6965050-X (Version None)
Quarter: 2010Q3

REPORT INFORMATION
  Report Type: 
  Country: None (occurrence: None)
  Receive Date: 20100903
  Receipt Date: 20100820
  Transmission Date: 20110219
  Serious: Yes (Other)
  Sender: FDA-Public Use
  Company Number: US-SANOFI-AVENTIS-2010SA050444

PATIENT
  Age: 66 Year
  Sex: Female

DRUGS (8)
  1. MULTAQ [Suspect]
     Indication: ATRIAL FIBRILLATION
     Route: 048
     Dates: start: 20100101
  2. BIAXIN [Suspect]
     Indication: INFECTION
     Route: 048
     Dates: start: 20100818, end: 20100819
  3. PLAVIX [Concomitant]
  4. NORVASC [Concomitant]
  5. GLUCOTROL [Concomitant]
  6. BENICAR [Concomitant]
  7. CALCIUM [Concomitant]
  8. FISH OIL [Concomitant]

REACTIONS (5)
  - ABDOMINAL PAIN UPPER [None]
  - ATRIAL FIBRILLATION [None]
  - DIARRHOEA [None]
  - DRUG INTERACTION [None]
  - NAUSEA [None]
